FAERS Safety Report 11132497 (Version 4)
Quarter: 2015Q3

REPORT INFORMATION
  Report Type: Spontaneous
  Country: US (occurrence: US)
  Receive Date: 20150522
  Receipt Date: 20150918
  Transmission Date: 20151125
  Serious: Yes (Hospitalization, Other)
  Sender: FDA-Public Use
  Company Number: US-INCYTE CORPORATION-2015IN002237

PATIENT
  Sex: Female
  Weight: 59.41 kg

DRUGS (8)
  1. JAKAFI [Suspect]
     Active Substance: RUXOLITINIB
     Dosage: 15 MG, BID
     Route: 048
     Dates: start: 20140707, end: 20140823
  2. FAMCICLOVIR. [Concomitant]
     Active Substance: FAMCICLOVIR
  3. JAKAFI [Suspect]
     Active Substance: RUXOLITINIB
     Indication: POLYCYTHAEMIA VERA
     Dosage: NOT SPECIFIED
     Route: 048
     Dates: start: 20140513
  4. GABAPENTIN. [Concomitant]
     Active Substance: GABAPENTIN
  5. PROTONIX [Concomitant]
     Active Substance: PANTOPRAZOLE SODIUM
  6. ASPIRIN. [Concomitant]
     Active Substance: ASPIRIN
  7. LEVOTHYROXINE. [Concomitant]
     Active Substance: LEVOTHYROXINE
  8. JAKAFI [Suspect]
     Active Substance: RUXOLITINIB
     Dosage: 10 MG, BID
     Route: 048
     Dates: start: 20140824

REACTIONS (20)
  - Dyspepsia [Unknown]
  - Pyrexia [Unknown]
  - Constipation [Unknown]
  - Meningitis viral [Recovered/Resolved]
  - Transient global amnesia [Recovered/Resolved]
  - Hot flush [Unknown]
  - Abdominal pain [Unknown]
  - Vomiting [Unknown]
  - Night sweats [Unknown]
  - Insomnia [Unknown]
  - Herpes zoster [Unknown]
  - Gallbladder disorder [Recovering/Resolving]
  - Thrombocytopenia [Unknown]
  - Gastrooesophageal reflux disease [Unknown]
  - Back pain [Recovered/Resolved]
  - Flank pain [Unknown]
  - Fatigue [Unknown]
  - Arthralgia [Unknown]
  - Pruritus [Unknown]
  - Headache [Recovered/Resolved]

NARRATIVE: CASE EVENT DATE: 2014
